FAERS Safety Report 23038461 (Version 1)
Quarter: 2023Q4

REPORT INFORMATION
  Report Type: Spontaneous
  Country: CA (occurrence: CA)
  Receive Date: 20231006
  Receipt Date: 20231006
  Transmission Date: 20240110
  Serious: Yes (Hospitalization)
  Sender: FDA-Public Use
  Company Number: CA-TEVA-2023-CA-2932241

PATIENT
  Age: 17 Year
  Sex: Female
  Weight: 43 kg

DRUGS (2)
  1. METHOTREXATE [Suspect]
     Active Substance: METHOTREXATE
     Indication: Crohn^s disease
     Route: 065
  2. INFLIXIMAB-DYYB [Concomitant]
     Active Substance: INFLIXIMAB-DYYB
     Indication: Crohn^s disease
     Route: 042

REACTIONS (5)
  - Condition aggravated [Unknown]
  - Fistula [Unknown]
  - Stenosis [Unknown]
  - Drug ineffective [Unknown]
  - Off label use [Unknown]
